FAERS Safety Report 4399767-0 (Version None)
Quarter: 2004Q3

REPORT INFORMATION
  Report Type: 
  Country: None (occurrence: None)
  Receive Date: 20040714
  Receipt Date: 20040706
  Transmission Date: 20050211
  Serious: Yes (Hospitalization)
  Sender: FDA-Public Use
  Company Number: 02P-087-0205688-00

PATIENT
  Age: 34 Year
  Sex: Male
  Weight: 68 kg

DRUGS (4)
  1. OMNICEF [Suspect]
     Indication: NASOPHARYNGITIS
     Dosage: 300 MG, 1 IN 1 D, PER ORAL
     Route: 048
     Dates: start: 20021107, end: 20021111
  2. SERRAPEPTASE [Concomitant]
  3. DICLOFENAC SODIUM [Concomitant]
  4. MARZULENE S [Concomitant]

REACTIONS (3)
  - DISEASE RECURRENCE [None]
  - LYMPHOCYTE STIMULATION TEST POSITIVE [None]
  - MENINGITIS ASEPTIC [None]
